FAERS Safety Report 15022973 (Version 1)
Quarter: 2018Q2

REPORT INFORMATION
  Report Type: Spontaneous
  Country: RO (occurrence: RO)
  Receive Date: 20180618
  Receipt Date: 20180618
  Transmission Date: 20180711
  Serious: Yes (Hospitalization, Other)
  Sender: FDA-Public Use
  Company Number: RO-ABBVIE-17P-135-2186830-00

PATIENT
  Age: 5 Year
  Sex: Female

DRUGS (3)
  1. LAMOTRIGINE. [Suspect]
     Active Substance: LAMOTRIGINE
     Route: 065
  2. DEPAKINE [Suspect]
     Active Substance: VALPROATE SODIUM
     Indication: EPILEPSY
     Route: 065
  3. LAMOTRIGINE. [Suspect]
     Active Substance: LAMOTRIGINE
     Indication: EPILEPSY
     Route: 065

REACTIONS (22)
  - Abdominal pain [Recovering/Resolving]
  - Drug ineffective [Recovering/Resolving]
  - Gastroenteritis norovirus [Recovering/Resolving]
  - Haemorrhage [Recovering/Resolving]
  - Lip dry [Recovering/Resolving]
  - Salivary hypersecretion [Recovering/Resolving]
  - Rash maculo-papular [Recovering/Resolving]
  - Rash [Recovering/Resolving]
  - Chapped lips [Recovering/Resolving]
  - Pharyngeal inflammation [Recovering/Resolving]
  - Vomiting [Recovering/Resolving]
  - Diarrhoea [Recovering/Resolving]
  - Dermatitis bullous [Recovering/Resolving]
  - Dysphagia [Recovering/Resolving]
  - Facial pain [Recovering/Resolving]
  - Condition aggravated [Recovering/Resolving]
  - Epilepsy [Recovering/Resolving]
  - Stevens-Johnson syndrome [Recovering/Resolving]
  - Pyrexia [Recovering/Resolving]
  - Pruritus [Recovering/Resolving]
  - Conjunctival hyperaemia [Recovering/Resolving]
  - Rotavirus infection [Recovering/Resolving]
